FAERS Safety Report 6255247-9 (Version None)
Quarter: 2009Q3

REPORT INFORMATION
  Report Type: 
  Country: None (occurrence: None)
  Receive Date: 20090702
  Receipt Date: 20090227
  Transmission Date: 20100115
  Serious: No
  Sender: FDA-Public Use
  Company Number: US-ABBOTT-08P-163-0489282-00

PATIENT

DRUGS (1)
  1. ULTANE [Suspect]
     Indication: SURGERY

REACTIONS (1)
  - DELAYED RECOVERY FROM ANAESTHESIA [None]
